FAERS Safety Report 5700238-7 (Version None)
Quarter: 2008Q2

REPORT INFORMATION
  Report Type: 
  Country: None (occurrence: None)
  Receive Date: 20080410
  Receipt Date: 20080328
  Transmission Date: 20081010
  Serious: Yes (Death, Life-Threatening, Other)
  Sender: FDA-Public Use
  Company Number: US-ELI_LILLY_AND_COMPANY-US200601005317

PATIENT
  Sex: Female
  Weight: 63.492 kg

DRUGS (9)
  1. STRATTERA [Suspect]
     Dosage: 40 MG, DAILY (1/D)
     Dates: start: 20060110
  2. ATENOLOL [Concomitant]
     Dosage: 50 MG, UNK
  3. DOXAZOSIN [Concomitant]
     Dosage: 2 MG, UNK
  4. LISINOPRIL [Concomitant]
  5. FLUOXETINE [Concomitant]
  6. DEPAKOTE [Concomitant]
  7. METFORMIN HCL [Concomitant]
  8. HYDROCORTISONE [Concomitant]
  9. FLUDROCORTISONE ACETATE [Concomitant]

REACTIONS (17)
  - BECKWITH-WIEDEMANN SYNDROME [None]
  - CIRCULATORY COLLAPSE [None]
  - CONVULSION [None]
  - DIZZINESS [None]
  - DRUG TOXICITY [None]
  - EUPHORIC MOOD [None]
  - FALL [None]
  - HOT FLUSH [None]
  - LUNG INFILTRATION [None]
  - NECK PAIN [None]
  - NEUROLEPTIC MALIGNANT SYNDROME [None]
  - PHAEOCHROMOCYTOMA [None]
  - PYREXIA [None]
  - TACHYCARDIA [None]
  - UNRESPONSIVE TO STIMULI [None]
  - VENTRICULAR FIBRILLATION [None]
  - WHITE BLOOD CELL COUNT INCREASED [None]
